FAERS Safety Report 7054173-5 (Version None)
Quarter: 2010Q4

REPORT INFORMATION
  Report Type: 
  Country: None (occurrence: None)
  Receive Date: 20101015
  Receipt Date: 20101010
  Transmission Date: 20110411
  Serious: Yes (Hospitalization, Other)
  Sender: FDA-Public Use
  Company Number: GP-10-10-0005

PATIENT
  Age: 14 Year
  Sex: Female

DRUGS (5)
  1. TOPIRAMATE [Suspect]
     Dosage: 50MG, BID, ORAL
     Route: 048
  2. LAMOTRIGINE [Suspect]
     Indication: EPILEPSY
     Dosage: 200MG, BID, ORAL
     Route: 048
  3. TOPAMAX [Suspect]
     Dosage: SEE IMAGE
     Route: 048
     Dates: start: 20070401, end: 20100601
  4. TOPAMAX [Suspect]
     Dosage: SEE IMAGE
     Route: 048
     Dates: start: 20100601
  5. TOPAMAX [Suspect]
     Dosage: SEE IMAGE
     Route: 048
     Dates: start: 20100709

REACTIONS (9)
  - ABASIA [None]
  - BALANCE DISORDER [None]
  - DISEASE RECURRENCE [None]
  - DIZZINESS [None]
  - DYSARTHRIA [None]
  - HEADACHE [None]
  - PETIT MAL EPILEPSY [None]
  - PRODUCT SUBSTITUTION ISSUE [None]
  - VISION BLURRED [None]
